FAERS Safety Report 5662352-4 (Version None)
Quarter: 2008Q1

REPORT INFORMATION
  Report Type: 
  Country: None (occurrence: None)
  Receive Date: 20080312
  Receipt Date: 20080304
  Transmission Date: 20080703
  Serious: Yes (Other)
  Sender: FDA-Public Use
  Company Number: BR-PFIZER INC-2008020930

PATIENT
  Sex: Female

DRUGS (6)
  1. PROVERA [Suspect]
     Indication: MENSTRUATION DELAYED
     Route: 048
     Dates: start: 20070101, end: 20070101
  2. PROVERA [Suspect]
     Route: 048
     Dates: start: 20080124, end: 20080130
  3. PROVERA [Suspect]
     Route: 048
  4. DIGOXIN [Concomitant]
  5. FUROSEMIDE [Concomitant]
  6. FLUOXETINE [Concomitant]

REACTIONS (1)
  - ABORTION SPONTANEOUS [None]
